FAERS Safety Report 23426844 (Version 1)
Quarter: 2024Q1

REPORT INFORMATION
  Report Type: Spontaneous
  Country: CA (occurrence: CA)
  Receive Date: 20240122
  Receipt Date: 20240122
  Transmission Date: 20240410
  Serious: Yes (Hospitalization)
  Sender: FDA-Public Use
  Company Number: None

PATIENT
  Age: 91 Year
  Sex: Male

DRUGS (16)
  1. APIXABAN [Suspect]
     Active Substance: APIXABAN
     Indication: Product used for unknown indication
  2. ATROVENT [Concomitant]
     Active Substance: IPRATROPIUM BROMIDE
     Route: 065
  3. CHOLESTYRAMINE [Concomitant]
     Active Substance: CHOLESTYRAMINE
  4. DICLOFENAC [Concomitant]
     Active Substance: DICLOFENAC
  5. GUAIFENESIN [Concomitant]
     Active Substance: GUAIFENESIN
  6. HYDROMORPHONE [Concomitant]
     Active Substance: HYDROMORPHONE
  7. LIDOCAINE [Concomitant]
     Active Substance: LIDOCAINE
     Dosage: OINTMENT TOPICAL
  8. LIPITOR [Concomitant]
     Active Substance: ATORVASTATIN CALCIUM
  9. MESALAMINE [Concomitant]
     Active Substance: MESALAMINE
  10. METOPROLOL [Concomitant]
     Active Substance: METOPROLOL
  11. PANTOPRAZOLE SODIUM [Concomitant]
     Active Substance: PANTOPRAZOLE SODIUM
     Dosage: TABLET (ENTERIC- COATED)
  12. TAMSULOSIN [Concomitant]
     Active Substance: TAMSULOSIN
     Dosage: CAPSULE,SUSTAINEDRELEASE
  13. TRAZODONE [Concomitant]
     Active Substance: TRAZODONE HYDROCHLORIDE
  14. TYLENOL [Concomitant]
     Active Substance: ACETAMINOPHEN
     Dosage: LIQUID
  15. VENTOLIN [Concomitant]
     Active Substance: ALBUTEROL SULFATE
  16. VITAMIN D [Concomitant]
     Active Substance: VITAMIN D NOS

REACTIONS (6)
  - Bladder irrigation [Recovering/Resolving]
  - Blood urine present [Recovering/Resolving]
  - Dyspnoea [Recovering/Resolving]
  - Haemorrhage urinary tract [Recovering/Resolving]
  - Tachypnoea [Recovering/Resolving]
  - Wheezing [Recovering/Resolving]
